FAERS Safety Report 5484319-1 (Version None)
Quarter: 2007Q4

REPORT INFORMATION
  Report Type: 
  Country: None (occurrence: None)
  Receive Date: 20071012
  Receipt Date: 20070928
  Transmission Date: 20080405
  Serious: No
  Sender: FDA-Public Use
  Company Number: US-BOEHRINGER INGELHEIM PHARMACEUTICALS, INC.-2007-BP-21257BP

PATIENT
  Sex: Male

DRUGS (8)
  1. SPIRIVA [Suspect]
     Indication: CHRONIC OBSTRUCTIVE PULMONARY DISEASE
     Route: 055
     Dates: start: 20040101
  2. SPIRIVA [Suspect]
     Indication: EMPHYSEMA
  3. ADVAIR DISKUS 100/50 [Concomitant]
  4. NASONEX [Concomitant]
  5. DIGITEK [Concomitant]
  6. WARFARIN SODIUM [Concomitant]
  7. LIPITOR [Concomitant]
  8. NEXIUM [Concomitant]

REACTIONS (2)
  - DRY MOUTH [None]
  - SINUS DISORDER [None]
